FAERS Safety Report 11795084 (Version 1)
Quarter: 2015Q4

REPORT INFORMATION
  Report Type: Report from Study
  Country: KR (occurrence: KR)
  Receive Date: 20151202
  Receipt Date: 20151202
  Transmission Date: 20160305
  Serious: Yes (Hospitalization)
  Sender: FDA-Public Use
  Company Number: KR-B.I. PHARMACEUTICALS,INC./RIDGEFIELD-2014-BI-09196BI

PATIENT
  Age: 54 Year
  Sex: Female
  Weight: 37 kg

DRUGS (6)
  1. BIBW 2992 [Suspect]
     Active Substance: AFATINIB
     Indication: SQUAMOUS CELL CARCINOMA OF HEAD AND NECK
     Dosage: ROUTE: FEEDING TUBE
     Route: 050
     Dates: start: 20140114
  2. SMECTA [Concomitant]
     Active Substance: MONTMORILLONITE
     Indication: DIARRHOEA
     Dosage: 20 ML
     Route: 048
     Dates: start: 20140313, end: 20140315
  3. BIBW 2992 [Suspect]
     Active Substance: AFATINIB
     Dosage: ROUTE: FEEDING TUBE
     Route: 050
     Dates: start: 20140310, end: 20140314
  4. BIBW 2992 [Suspect]
     Active Substance: AFATINIB
     Dosage: ROUTE: FEEDING TUBE
     Route: 050
     Dates: start: 20140319
  5. HC LOTION [Concomitant]
     Indication: RASH
     Dosage: FORMULATION: LOTION, ROUTE: DROPS, DAILY DOSE: 1 BTL
     Route: 004
     Dates: start: 20140115
  6. BIBW 2992 [Suspect]
     Active Substance: AFATINIB
     Dosage: ROUTE: FEEDING TUBE
     Route: 050
     Dates: start: 20140211, end: 20140224

REACTIONS (3)
  - Diarrhoea [Recovered/Resolved]
  - Dehydration [Recovered/Resolved]
  - Skin infection [Recovered/Resolved]

NARRATIVE: CASE EVENT DATE: 20140227
